FAERS Safety Report 12537853 (Version 1)
Quarter: 2016Q3

REPORT INFORMATION
  Report Type: Spontaneous
  Country: US (occurrence: US)
  Receive Date: 20160707
  Receipt Date: 20160707
  Transmission Date: 20161109
  Serious: Yes (Other)
  Sender: FDA-Public Use
  Company Number: US-DSJP-DSU-2015-120677

PATIENT
  Sex: Female
  Weight: 83.9 kg

DRUGS (2)
  1. BENICAR HCT [Suspect]
     Active Substance: HYDROCHLOROTHIAZIDE\OLMESARTAN MEDOXOMIL
     Indication: HYPERTENSION
     Dosage: UNK
     Dates: start: 2005
  2. BENICAR HCT [Suspect]
     Active Substance: HYDROCHLOROTHIAZIDE\OLMESARTAN MEDOXOMIL
     Dosage: 40/25 MG, UNK
     Dates: start: 2007, end: 2010

REACTIONS (7)
  - Anxiety [Unknown]
  - Gastritis [Unknown]
  - Malabsorption [Unknown]
  - Haemorrhoids [Unknown]
  - Depression [Not Recovered/Not Resolved]
  - Diverticulum [Unknown]
  - Inflammation [Unknown]

NARRATIVE: CASE EVENT DATE: 2010
